FAERS Safety Report 21906167 (Version 1)
Quarter: 2023Q1

REPORT INFORMATION
  Report Type: Spontaneous
  Country: GB (occurrence: GB)
  Receive Date: 20230124
  Receipt Date: 20230124
  Transmission Date: 20230417
  Serious: Yes (Hospitalization)
  Sender: FDA-Public Use
  Company Number: None

PATIENT
  Age: 72 Year
  Sex: Male

DRUGS (16)
  1. FUROSEMIDE [Suspect]
     Active Substance: FUROSEMIDE
     Indication: Product used for unknown indication
     Dosage: 40MG BD
  2. DAPAGLIFLOZIN [Suspect]
     Active Substance: DAPAGLIFLOZIN
     Indication: Product used for unknown indication
     Dosage: 10 MG DAILY
  3. FERROUS SULFATE [Concomitant]
     Active Substance: FERROUS SULFATE
  4. ASPIRIN [Concomitant]
     Active Substance: ASPIRIN
  5. ATORVASTATIN [Concomitant]
     Active Substance: ATORVASTATIN
  6. BISOPROLOL [Concomitant]
     Active Substance: BISOPROLOL
  7. CARBOCYSTEINE [Concomitant]
     Active Substance: CARBOCYSTEINE
  8. ERDOSTEINE [Concomitant]
     Active Substance: ERDOSTEINE
  9. GLICLAZIDE [Concomitant]
     Active Substance: GLICLAZIDE
  10. METFORMIN [Concomitant]
     Active Substance: METFORMIN HYDROCHLORIDE
  11. OMEPRAZOLE [Concomitant]
     Active Substance: OMEPRAZOLE
  12. OXYCODONE HYDROCHLORIDE [Concomitant]
     Active Substance: OXYCODONE HYDROCHLORIDE
  13. SERTRALINE [Concomitant]
     Active Substance: SERTRALINE HYDROCHLORIDE
  14. SPIRONOLACTONE [Concomitant]
     Active Substance: SPIRONOLACTONE
  15. TAMSULOSIN [Concomitant]
     Active Substance: TAMSULOSIN
  16. TICAGRELOR [Concomitant]
     Active Substance: TICAGRELOR

REACTIONS (1)
  - Hypovolaemia [Recovering/Resolving]

NARRATIVE: CASE EVENT DATE: 20230113
